FAERS Safety Report 13364194 (Version 1)
Quarter: 2017Q1

REPORT INFORMATION
  Report Type: Spontaneous
  Country: GB (occurrence: GB)
  Receive Date: 20170323
  Receipt Date: 20170323
  Transmission Date: 20170429
  Serious: Yes (Other)
  Sender: FDA-Public Use
  Company Number: US-BRAINTREE LABORATORIES-160882-5

PATIENT
  Age: 68 Year
  Sex: Female

DRUGS (1)
  1. EZICLEN [Suspect]
     Active Substance: MAGNESIUM SULFATE\POTASSIUM SULFATE\SODIUM SULFATE
     Indication: COLONOSCOPY
     Dosage: 2 X 6 OZ. BOTTLE
     Route: 048
     Dates: start: 20161130, end: 20161201

REACTIONS (6)
  - Abdominal distension [None]
  - Anorectal discomfort [None]
  - Scab [None]
  - Abdominal pain [None]
  - Malaise [None]
  - Pain [None]

NARRATIVE: CASE EVENT DATE: 20161130
